FAERS Safety Report 11921942 (Version 1)
Quarter: 2016Q1

REPORT INFORMATION
  Report Type: Spontaneous
  Country: BR (occurrence: BR)
  Receive Date: 20160115
  Receipt Date: 20160115
  Transmission Date: 20160526
  Serious: Yes (Other)
  Sender: FDA-Public Use
  Company Number: BR-ELI_LILLY_AND_COMPANY-BR201601000780

PATIENT
  Sex: Female
  Weight: 85 kg

DRUGS (11)
  1. FORTEO [Suspect]
     Active Substance: TERIPARATIDE
     Indication: OSTEOPOROSIS
     Dosage: UNK, QD
     Route: 058
     Dates: start: 201501
  2. BENICAR [Concomitant]
     Active Substance: OLMESARTAN MEDOXOMIL
     Dosage: 40 MG, UNKNOWN
     Route: 065
  3. NORIPURUM [Concomitant]
     Active Substance: IRON POLYMALTOSE
     Dosage: UNK, WEEKLY (1/W)
     Route: 042
  4. REUQUINOL [Concomitant]
     Active Substance: HYDROXYCHLOROQUINE SULFATE
     Dosage: 400 MG, UNKNOWN
     Route: 065
  5. PANTOPRAZOL [Concomitant]
     Active Substance: PANTOPRAZOLE SODIUM
     Dosage: 40 MG, UNKNOWN
     Route: 065
  6. CYMBI                              /01749302/ [Concomitant]
     Dosage: 60 MG, UNKNOWN
     Route: 065
  7. ETNA                               /08554001/ [Concomitant]
     Dosage: UNK, UNKNOWN
     Route: 065
  8. ERYTHROPOIETIN [Concomitant]
     Active Substance: ERYTHROPOIETIN
     Dosage: 8000 IU, 3/W
     Route: 042
  9. PRELONE                            /00016202/ [Concomitant]
     Dosage: 5 MG, UNKNOWN
     Route: 065
  10. LYRICA [Concomitant]
     Active Substance: PREGABALIN
     Dosage: 75 MG, UNKNOWN
     Route: 065
  11. DIOSMIN SDU [Concomitant]
     Active Substance: DIOSMIN
     Dosage: UNK, UNKNOWN
     Route: 065

REACTIONS (1)
  - Procedural haemorrhage [Unknown]
